FAERS Safety Report 9420875 (Version 1)
Quarter: 2013Q3

REPORT INFORMATION
  Report Type: Spontaneous
  Country: US (occurrence: US)
  Receive Date: 20130725
  Receipt Date: 20130725
  Transmission Date: 20140515
  Serious: No
  Sender: FDA-Public Use
  Company Number: US-ABBOTT-13P-163-1098522-00

PATIENT
  Sex: Male

DRUGS (2)
  1. SYNTHROID [Suspect]
     Indication: HYPOTHYROIDISM
  2. SYNTHROID [Suspect]
     Dates: start: 201305

REACTIONS (2)
  - Unevaluable event [Unknown]
  - Fatigue [Recovered/Resolved]
